FAERS Safety Report 9527076 (Version 1)
Quarter: 2013Q3

REPORT INFORMATION
  Report Type: Spontaneous
  Country: US (occurrence: US)
  Receive Date: 20130916
  Receipt Date: 20130916
  Transmission Date: 20140515
  Serious: Yes (Hospitalization)
  Sender: FDA-Public Use
  Company Number: US-TEVA-371270USA

PATIENT
  Sex: 0

DRUGS (4)
  1. FOLINIC ACID [Suspect]
     Indication: COLON CANCER METASTATIC
     Route: 042
  2. ZALTRAP [Suspect]
     Indication: COLON CANCER METASTATIC
     Route: 042
  3. FLUOROURACIL [Suspect]
     Indication: COLON CANCER METASTATIC
     Route: 042
  4. IRINOTECAN [Suspect]
     Indication: COLON CANCER METASTATIC
     Route: 042

REACTIONS (1)
  - Colitis [Unknown]
